FAERS Safety Report 9373452 (Version 1)
Quarter: 2013Q2

REPORT INFORMATION
  Report Type: Spontaneous
  Country: US (occurrence: US)
  Receive Date: 20130627
  Receipt Date: 20130627
  Transmission Date: 20140414
  Serious: No
  Sender: FDA-Public Use
  Company Number: US-009507513-1306USA013534

PATIENT
  Sex: Female

DRUGS (1)
  1. COPPERTONE SPORT CONTINUOUS SPRAY SPF-30 [Suspect]
     Dosage: UNK, UNKNOWN
     Route: 061

REACTIONS (1)
  - Sunburn [Unknown]
